FAERS Safety Report 7612305-1 (Version None)
Quarter: 2011Q3

REPORT INFORMATION
  Report Type: 
  Country: None (occurrence: None)
  Receive Date: 20110715
  Receipt Date: 20110707
  Transmission Date: 20111222
  Serious: Yes (Hospitalization, Other)
  Sender: FDA-Public Use
  Company Number: US-ASTRAZENECA-2010SE05175

PATIENT
  Age: 680 Month
  Sex: Female
  Weight: 51.7 kg

DRUGS (6)
  1. SEROQUEL [Suspect]
     Indication: CONVULSION
     Route: 048
     Dates: start: 20090201
  2. SEROQUEL [Suspect]
     Route: 048
     Dates: start: 20091101
  3. SEROQUEL [Suspect]
     Route: 048
     Dates: start: 20091101
  4. SEROQUEL [Suspect]
     Indication: SLEEP DISORDER
     Route: 048
     Dates: start: 20090201
  5. LAMICTAL [Concomitant]
     Indication: CONVULSION
  6. DEPAKOTE [Concomitant]
     Indication: CONVULSION

REACTIONS (6)
  - OFF LABEL USE [None]
  - PELVIC FRACTURE [None]
  - INTENTIONAL DRUG MISUSE [None]
  - CONVULSION [None]
  - DISABILITY [None]
  - ROAD TRAFFIC ACCIDENT [None]
